FAERS Safety Report 7273204-0 (Version None)
Quarter: 2011Q1

REPORT INFORMATION
  Report Type: 
  Country: None (occurrence: None)
  Receive Date: 20110203
  Receipt Date: 20110125
  Transmission Date: 20110831
  Serious: Yes (Other)
  Sender: FDA-Public Use
  Company Number: DE-PFIZER INC-2011022569

PATIENT
  Sex: Male

DRUGS (1)
  1. TOVIAZ [Suspect]

REACTIONS (2)
  - DEMENTIA [None]
  - CONFUSIONAL STATE [None]
